FAERS Safety Report 17647040 (Version 1)
Quarter: 2020Q2

REPORT INFORMATION
  Report Type: Spontaneous
  Country: US (occurrence: US)
  Receive Date: 20200408
  Receipt Date: 20200408
  Transmission Date: 20200713
  Serious: No
  Sender: FDA-Public Use
  Company Number: US-JNJFOC-20200400152

PATIENT
  Age: 39 Year
  Sex: Female

DRUGS (2)
  1. STELARA [Suspect]
     Active Substance: USTEKINUMAB
  2. STELARA [Suspect]
     Active Substance: USTEKINUMAB
     Indication: PSORIASIS
     Dosage: 45MG/0.5
     Route: 058

REACTIONS (3)
  - Product dose omission [Unknown]
  - Infection [Unknown]
  - Psoriasis [Unknown]

NARRATIVE: CASE EVENT DATE: 201912
